FAERS Safety Report 7310717-7 (Version None)
Quarter: 2011Q1

REPORT INFORMATION
  Report Type: 
  Country: None (occurrence: None)
  Receive Date: 20110211
  Receipt Date: 20110207
  Transmission Date: 20110831
  Serious: Yes (Hospitalization, Other)
  Sender: FDA-Public Use
  Company Number: 20108970

PATIENT
  Sex: Male

DRUGS (3)
  1. EPINEPHRINE [Concomitant]
  2. LIORESAL [Suspect]
     Indication: MUSCLE SPASTICITY
     Dosage: ~600 MCG, DAILY, INTRATHECAL
     Route: 037
  3. DOPAMINE [Concomitant]

REACTIONS (10)
  - OVERDOSE [None]
  - BONE LESION [None]
  - PYREXIA [None]
  - PAIN [None]
  - CATHETER SITE RELATED REACTION [None]
  - MUSCLE SPASTICITY [None]
  - DEVICE COMPUTER ISSUE [None]
  - BLOOD PRESSURE ABNORMAL [None]
  - RESPIRATORY DEPRESSION [None]
  - DEVICE BREAKAGE [None]
